FAERS Safety Report 8131309-6 (Version None)
Quarter: 2012Q1

REPORT INFORMATION
  Report Type: 
  Country: None (occurrence: None)
  Receive Date: 20120213
  Receipt Date: 20120203
  Transmission Date: 20120608
  Serious: Yes (Disabling)
  Sender: FDA-Public Use
  Company Number: GB-US-EMD SERONO, INC.-7099780

PATIENT
  Sex: Female
  Weight: 59 kg

DRUGS (1)
  1. CHORIONIC GONADOTROPIN [Suspect]
     Indication: OVULATION INDUCTION
     Dosage: 1 SYRINGE, SINGLE DOSE
     Route: 058
     Dates: start: 20111109, end: 20111109

REACTIONS (1)
  - FUNGAL INFECTION [None]
